FAERS Safety Report 25823894 (Version 1)
Quarter: 2025Q3

REPORT INFORMATION
  Report Type: Spontaneous
  Country: CN (occurrence: CN)
  Receive Date: 20250919
  Receipt Date: 20250919
  Transmission Date: 20251021
  Serious: Yes (Other)
  Sender: TETRAPHASE PHARMACEUTICALS, INC.
  Company Number: CN-TETRAPHASE PHARMACEUTICALS, INC-2025-ISTX-000172

PATIENT
  Age: 66 Year
  Sex: Female

DRUGS (7)
  1. XERAVA [Suspect]
     Active Substance: ERAVACYCLINE DIHYDROCHLORIDE
     Indication: Acinetobacter infection
     Route: 042
  2. IMIPENEM AND CILASTATIN SODIUM [Concomitant]
     Active Substance: CILASTATIN SODIUM\IMIPENEM
     Indication: Product used for unknown indication
  3. NITRIC OXIDE [Concomitant]
     Active Substance: NITRIC OXIDE
     Indication: Transplant dysfunction
  4. NOREPINEPHRINE [Concomitant]
     Active Substance: NOREPINEPHRINE
     Indication: Blood pressure abnormal
  5. VASOPRESSIN [Concomitant]
     Active Substance: VASOPRESSIN
     Indication: Blood pressure measurement
     Route: 065
  6. Polymyxin e1 [Concomitant]
     Indication: Product used for unknown indication
     Route: 065
  7. PHENTOLAMINE [Concomitant]
     Active Substance: PHENTOLAMINE
     Indication: Product used for unknown indication
     Route: 065

REACTIONS (2)
  - Suspected drug-induced liver injury [Not Recovered/Not Resolved]
  - Off label use [Unknown]
